FAERS Safety Report 5199545-9 (Version None)
Quarter: 2006Q4

REPORT INFORMATION
  Report Type: 
  Country: None (occurrence: None)
  Receive Date: 20061229
  Receipt Date: 20061214
  Transmission Date: 20070319
  Serious: Yes (Hospitalization, Other)
  Sender: FDA-Public Use
  Company Number: 2006RR-04971

PATIENT
  Age: 33 Year
  Sex: 0

DRUGS (3)
  1. DICLOFENAC SODIUM [Suspect]
     Indication: ANALGESIC EFFECT
     Dosage: 50 MG, TID, ORAL
     Route: 048
     Dates: start: 20061116, end: 20061127
  2. IBUPROFEN [Suspect]
     Indication: ANALGESIC EFFECT
     Dosage: 400 MG, TID, ORAL
     Route: 048
     Dates: start: 20061114, end: 20061127
  3. LANSOPRAZOLE [Concomitant]

REACTIONS (4)
  - ABDOMINAL PAIN [None]
  - DIARRHOEA [None]
  - DYSPEPSIA [None]
  - FAECES DISCOLOURED [None]
